FAERS Safety Report 5001585-7 (Version None)
Quarter: 2006Q2

REPORT INFORMATION
  Report Type: 
  Country: None (occurrence: None)
  Receive Date: 20060511
  Receipt Date: 20060511
  Transmission Date: 20061013
  Serious: Yes (Disabling, Other)
  Sender: FDA-Public Use
  Company Number: None

PATIENT
  Age: 11 Year
  Weight: 52.6173 kg

DRUGS (1)
  1. NORTRIPTYLINE HCL [Suspect]
     Indication: ATTENTION DEFICIT/HYPERACTIVITY DISORDER
     Dates: start: 20030201

REACTIONS (4)
  - ATTENTION DEFICIT/HYPERACTIVITY DISORDER [None]
  - CONDITION AGGRAVATED [None]
  - THERAPEUTIC RESPONSE UNEXPECTED WITH DRUG SUBSTITUTION [None]
  - TIC [None]
